FAERS Safety Report 24166685 (Version 1)
Quarter: 2024Q3

REPORT INFORMATION
  Report Type: Spontaneous
  Country: IT (occurrence: IT)
  Receive Date: 20240802
  Receipt Date: 20240802
  Transmission Date: 20241017
  Serious: Yes (Other)
  Sender: RANBAXY
  Company Number: IT-SUN PHARMACEUTICAL INDUSTRIES LTD-2024RR-460683

PATIENT
  Age: 82 Year
  Sex: Male

DRUGS (4)
  1. CETIRIZINE [Suspect]
     Active Substance: CETIRIZINE HYDROCHLORIDE
     Indication: Antiallergic therapy
     Dosage: UNK
     Route: 065
  2. TACROLIMUS [Suspect]
     Active Substance: TACROLIMUS
     Indication: Dermatitis atopic
     Dosage: 0.1 PERCENT OINTMENT
     Route: 061
  3. CLOBETASOL [Suspect]
     Active Substance: CLOBETASOL
     Indication: Dermatitis atopic
     Dosage: 0.05 PERCENT CREAM
     Route: 061
  4. RUPATADINE [Suspect]
     Active Substance: RUPATADINE
     Indication: Antiallergic therapy
     Dosage: UNK
     Route: 065

REACTIONS (1)
  - Drug resistance [Unknown]
